FAERS Safety Report 5889777-6 (Version None)
Quarter: 2008Q3

REPORT INFORMATION
  Report Type: 
  Country: None (occurrence: None)
  Receive Date: 20080919
  Receipt Date: 20080908
  Transmission Date: 20090109
  Serious: No
  Sender: FDA-Public Use
  Company Number: US-ELI_LILLY_AND_COMPANY-US200809002107

PATIENT
  Age: 33 Year
  Sex: Female

DRUGS (3)
  1. CYMBALTA [Suspect]
     Dosage: 30 MG, UNK
     Dates: start: 20080519, end: 20080525
  2. CYMBALTA [Suspect]
     Dosage: 60 MG, UNK
     Dates: start: 20080604, end: 20080601
  3. CYMBALTA [Suspect]
     Dosage: 30 MG, UNK
     Dates: start: 20080601, end: 20080811

REACTIONS (1)
  - HEPATIC ENZYME INCREASED [None]
